FAERS Safety Report 6132323-2 (Version None)
Quarter: 2009Q1

REPORT INFORMATION
  Report Type: 
  Country: None (occurrence: None)
  Receive Date: 20090325
  Receipt Date: 20090318
  Transmission Date: 20090719
  Serious: Yes (Death)
  Sender: FDA-Public Use
  Company Number: JP-JNJFOC-20090102078

PATIENT
  Sex: Male
  Weight: 52 kg

DRUGS (5)
  1. RISPERDAL [Suspect]
     Indication: DRUG USE FOR UNKNOWN INDICATION
     Route: 048
  2. HALOPERIDOL [Suspect]
     Indication: DRUG USE FOR UNKNOWN INDICATION
     Route: 042
  3. CARBAMAZEPINE [Concomitant]
     Route: 048
  4. ZONISAMIDE [Concomitant]
     Route: 048
  5. FAMOTIDINE [Concomitant]
     Route: 048

REACTIONS (1)
  - HYPERCAPNIA [None]
